FAERS Safety Report 6582342-7 (Version None)
Quarter: 2010Q1

REPORT INFORMATION
  Report Type: 
  Country: None (occurrence: None)
  Receive Date: 20100216
  Receipt Date: 20100211
  Transmission Date: 20100710
  Serious: Yes (Other)
  Sender: FDA-Public Use
  Company Number: ES-TYCO HEALTHCARE/MALLINCKRODT-T201000614

PATIENT
  Age: 50 Year
  Sex: Female

DRUGS (1)
  1. OPTIRAY ULTRAJECT 320 [Suspect]
     Indication: DIAGNOSTIC PROCEDURE
     Dosage: 90 ML, SINGLE
     Route: 042
     Dates: start: 20091217, end: 20091217

REACTIONS (3)
  - FACE OEDEMA [None]
  - LARYNGEAL OEDEMA [None]
  - TONGUE OEDEMA [None]
